FAERS Safety Report 4597899-5 (Version None)
Quarter: 2005Q1

REPORT INFORMATION
  Report Type: 
  Country: None (occurrence: None)
  Receive Date: 20050301
  Receipt Date: 20050214
  Transmission Date: 20050727
  Serious: Yes (Hospitalization)
  Sender: FDA-Public Use
  Company Number: US014707

PATIENT
  Sex: Female
  Weight: 65.7716 kg

DRUGS (4)
  1. PROVIGIL [Suspect]
     Dosage: 100 MG ORAL
     Route: 048
  2. BETASERON [Suspect]
  3. BACLOFEN [Concomitant]
  4. PREDNISONE [Concomitant]

REACTIONS (1)
  - GRAND MAL CONVULSION [None]
